FAERS Safety Report 15389535 (Version 1)
Quarter: 2018Q3

REPORT INFORMATION
  Report Type: Spontaneous
  Country: US (occurrence: US)
  Receive Date: 20180917
  Receipt Date: 20180917
  Transmission Date: 20181010
  Serious: No
  Sender: FDA-Public Use
  Company Number: US-TEVA-822011ACC

PATIENT
  Sex: Female

DRUGS (4)
  1. FENTANYL. [Suspect]
     Active Substance: FENTANYL
     Indication: ANALGESIC THERAPY
     Dosage: DOSE STRENGTH:  50MCG 5
     Route: 062
     Dates: start: 2005
  2. FENTANYL. [Suspect]
     Active Substance: FENTANYL
     Route: 062
  3. FENTANYL. [Suspect]
     Active Substance: FENTANYL
     Route: 062
  4. FENTANYL. [Suspect]
     Active Substance: FENTANYL
     Indication: CANCER PAIN
     Route: 062
     Dates: start: 2005

REACTIONS (3)
  - Product adhesion issue [Unknown]
  - Intentional product misuse [Unknown]
  - Drug ineffective [Unknown]
